FAERS Safety Report 9054125 (Version 2)
Quarter: 2013Q1

REPORT INFORMATION
  Report Type: Report from Study
  Country: FR (occurrence: FR)
  Receive Date: 20130208
  Receipt Date: 20130328
  Transmission Date: 20140127
  Serious: Yes (Life-Threatening, Other)
  Sender: FDA-Public Use
  Company Number: FR-GENZYME-CAMP-1002703

PATIENT
  Age: 56 None
  Sex: Female

DRUGS (2)
  1. CAMPATH [Suspect]
     Indication: COELIAC DISEASE
     Dosage: 30 MG, 3X/W
     Route: 058
     Dates: start: 20120806, end: 20120919
  2. CAMPATH [Suspect]
     Dosage: 30 MG, 3X/W
     Route: 058
     Dates: start: 20121003, end: 20121107

REACTIONS (2)
  - Drug ineffective for unapproved indication [Unknown]
  - Abdominal pain [Not Recovered/Not Resolved]
